FAERS Safety Report 15882969 (Version 1)
Quarter: 2019Q1

REPORT INFORMATION
  Report Type: Report from Study
  Country: US (occurrence: US)
  Receive Date: 20190129
  Receipt Date: 20190129
  Transmission Date: 20190417
  Serious: No
  Sender: FDA-Public Use
  Company Number: PHEH2019US004122

PATIENT
  Sex: Female
  Weight: 90 kg

DRUGS (1)
  1. ILARIS [Suspect]
     Active Substance: CANAKINUMAB
     Indication: PRODUCT USED FOR UNKNOWN INDICATION
     Dosage: 300 MG, EVERY 8 WEEKS
     Route: 058

REACTIONS (5)
  - Joint swelling [Unknown]
  - Asthenia [Unknown]
  - Arthralgia [Unknown]
  - Pyrexia [Unknown]
  - Peripheral swelling [Unknown]
